FAERS Safety Report 6754080-9 (Version None)
Quarter: 2010Q2

REPORT INFORMATION
  Report Type: 
  Country: None (occurrence: None)
  Receive Date: 20100603
  Receipt Date: 20100527
  Transmission Date: 20101027
  Serious: Yes (Life-Threatening, Hospitalization)
  Sender: FDA-Public Use
  Company Number: FR-CELGENEUS-056-21880-10032855

PATIENT
  Sex: Female
  Weight: 71 kg

DRUGS (3)
  1. REVLIMID [Suspect]
     Route: 048
     Dates: start: 20100224
  2. ROCEPHIN [Concomitant]
     Indication: PALLIATIVE CARE
     Route: 065
     Dates: end: 20100326
  3. TAVANIC [Concomitant]
     Indication: PALLIATIVE CARE
     Route: 065
     Dates: end: 20100326

REACTIONS (7)
  - ASTHENIA [None]
  - DEHYDRATION [None]
  - DIARRHOEA [None]
  - GENERAL PHYSICAL HEALTH DETERIORATION [None]
  - HAEMORRHAGE [None]
  - MALNUTRITION [None]
  - PNEUMONIA [None]
